FAERS Safety Report 10953103 (Version 1)
Quarter: 2015Q1

REPORT INFORMATION
  Report Type: Spontaneous
  Country: CA (occurrence: CA)
  Receive Date: 20150325
  Receipt Date: 20150325
  Transmission Date: 20150721
  Serious: Yes (Death)
  Sender: FDA-Public Use
  Company Number: CA-PFIZER INC-2015100735

PATIENT
  Age: 44 Year
  Sex: Male
  Weight: 80 kg

DRUGS (2)
  1. XALKORI [Suspect]
     Active Substance: CRIZOTINIB
     Indication: NON-SMALL CELL LUNG CANCER
     Dosage: UNK
     Route: 048
  2. DEXAMETHASONE. [Interacting]
     Active Substance: DEXAMETHASONE

REACTIONS (6)
  - Emphysematous cystitis [Fatal]
  - Abdominal sepsis [Fatal]
  - Pulmonary embolism [Fatal]
  - Drug interaction [Fatal]
  - Haemoptysis [Fatal]
  - Respiratory failure [Fatal]
